FAERS Safety Report 20631192 (Version 1)
Quarter: 2022Q1

REPORT INFORMATION
  Report Type: Spontaneous
  Country: DZ (occurrence: DZ)
  Receive Date: 20220324
  Receipt Date: 20220324
  Transmission Date: 20220423
  Serious: Yes (Death, Other)
  Sender: FDA-Public Use
  Company Number: DZ-AMGEN-DZASP2022047337

PATIENT

DRUGS (3)
  1. ADALIMUMAB [Suspect]
     Active Substance: ADALIMUMAB
     Indication: Crohn^s disease
     Dosage: UNK
     Route: 065
  2. ADALIMUMAB [Suspect]
     Active Substance: ADALIMUMAB
     Indication: Colitis ulcerative
  3. BCG VACCINE [Concomitant]
     Active Substance: BCG VACCINE

REACTIONS (16)
  - Death [Fatal]
  - Perineal disorder [Unknown]
  - Neoplasm malignant [Unknown]
  - Tuberculous pleurisy [Unknown]
  - Lymph node tuberculosis [Unknown]
  - Tuberculosis of genitourinary system [Unknown]
  - Pulmonary tuberculosis [Unknown]
  - Pericarditis tuberculous [Unknown]
  - Peritoneal tuberculosis [Unknown]
  - Tuberculosis [Unknown]
  - Drug intolerance [Unknown]
  - Therapeutic product effect decreased [Unknown]
  - Therapy non-responder [Unknown]
  - Adverse event [Unknown]
  - Anorectal disorder [Unknown]
  - Hypersensitivity [Unknown]
